FAERS Safety Report 12958854 (Version 1)
Quarter: 2016Q4

REPORT INFORMATION
  Report Type: Spontaneous
  Country: US (occurrence: US)
  Receive Date: 20161117
  Receipt Date: 20161117
  Transmission Date: 20170207
  Serious: Yes (Hospitalization)
  Sender: FDA-Public Use
  Company Number: None

PATIENT
  Age: 58 Year
  Sex: Male

DRUGS (20)
  1. CEPACOL [Concomitant]
     Active Substance: BENZOCAINE
  2. SIMETHICONE (DIMETHICONE) [Concomitant]
     Active Substance: DIMETHICONE
  3. TRAMADOL. [Concomitant]
     Active Substance: TRAMADOL
  4. LINEZOLID. [Suspect]
     Active Substance: LINEZOLID
     Indication: OSTEOMYELITIS
     Route: 042
     Dates: start: 20160916, end: 20160923
  5. LEVOFLOXACIN. [Concomitant]
     Active Substance: LEVOFLOXACIN
  6. NYSTATIN/ZINC/HYDROCORTISONE [Concomitant]
  7. ONDANSETRON [Concomitant]
     Active Substance: ONDANSETRON
  8. FENTANYL. [Concomitant]
     Active Substance: FENTANYL
  9. HYDROMORPHONE [Concomitant]
     Active Substance: HYDROMORPHONE
  10. LACTULOSE. [Concomitant]
     Active Substance: LACTULOSE
  11. LIDOCAINE. [Concomitant]
     Active Substance: LIDOCAINE
  12. POLYETHYLENE GLYCOL 3350. [Concomitant]
     Active Substance: POLYETHYLENE GLYCOL 3350
  13. LORAZEPAM. [Concomitant]
     Active Substance: LORAZEPAM
  14. ACETAMINOPHEN. [Concomitant]
     Active Substance: ACETAMINOPHEN
  15. FUROSEMIDE. [Concomitant]
     Active Substance: FUROSEMIDE
  16. SPIRONOLACTONE. [Concomitant]
     Active Substance: SPIRONOLACTONE
  17. ALBUMIN [Concomitant]
     Active Substance: ALBUMIN HUMAN
  18. SODIUM POLYSTYRENE SULFONATE. [Concomitant]
     Active Substance: SODIUM POLYSTYRENE SULFONATE
  19. BENZONATATE. [Concomitant]
     Active Substance: BENZONATATE
  20. ZINC [Concomitant]
     Active Substance: ZINC\ZINC CHLORIDE

REACTIONS (6)
  - Anaemia [None]
  - Platelet count decreased [None]
  - Staphylococcal bacteraemia [None]
  - Hyponatraemia [None]
  - Ascites [None]
  - Hepatic cirrhosis [None]

NARRATIVE: CASE EVENT DATE: 20160923
